APPROVED DRUG PRODUCT: METHOCARBAMOL
Active Ingredient: METHOCARBAMOL
Strength: 1GM/10ML (100MG/ML)
Dosage Form/Route: SOLUTION;IM-IV
Application: A204404 | Product #001
Applicant: PHARMOBEDIENT CONSULTING LLC
Approved: Dec 5, 2014 | RLD: No | RS: No | Type: DISCN